FAERS Safety Report 18806594 (Version 2)
Quarter: 2021Q1

REPORT INFORMATION
  Report Type: Report from Study
  Country: GE (occurrence: GE)
  Receive Date: 20210129
  Receipt Date: 20210225
  Transmission Date: 20210419
  Serious: Yes (Other)
  Sender: FDA-Public Use
  Company Number: GE-ROCHE-2759216

PATIENT
  Age: 57 Year
  Sex: Male
  Weight: 75 kg

DRUGS (6)
  1. ATEZOLIZUMAB. [Suspect]
     Active Substance: ATEZOLIZUMAB
     Indication: HEPATOCELLULAR CARCINOMA
     Dosage: ON 29/DEC/2020, THE PATIENT RECEIVED THE MOST RECENT DOSE OF ATEZOLIZUMAB PRIOR TO THE EVENT.
     Route: 041
     Dates: start: 20200210
  2. XL184 [Suspect]
     Active Substance: CABOZANTINIB
     Route: 048
     Dates: start: 20200623
  3. XL184 [Suspect]
     Active Substance: CABOZANTINIB
     Indication: HEPATOCELLULAR CARCINOMA
     Dosage: ON 21/JAN/2021, THE PATIENT RECEIVED THE MOST RECENT DOSE OF CABOZANTINIB 20 MG PRIOR TO THE EVENT.
     Route: 048
     Dates: start: 20200210
  4. XL184 [Suspect]
     Active Substance: CABOZANTINIB
     Route: 048
     Dates: start: 20210203
  5. MAGNESIUM SULFATE. [Concomitant]
     Active Substance: MAGNESIUM SULFATE
  6. POTASSIUM OROTATE [Concomitant]

REACTIONS (1)
  - Hypokalaemia [Recovered/Resolved]

NARRATIVE: CASE EVENT DATE: 20210122
